FAERS Safety Report 7853631-0 (Version None)
Quarter: 2011Q4

REPORT INFORMATION
  Report Type: 
  Country: None (occurrence: None)
  Receive Date: 20111026
  Receipt Date: 20111019
  Transmission Date: 20120403
  Serious: Yes (Other)
  Sender: FDA-Public Use
  Company Number: GB-PFIZER INC-2011252917

PATIENT
  Age: 59 Year
  Sex: Male
  Weight: 75 kg

DRUGS (15)
  1. LINEZOLID [Suspect]
     Indication: CELLULITIS
     Dosage: 600 MG, 2X/DAY
     Route: 042
     Dates: start: 20111003, end: 20111006
  2. AMLODIPINE [Concomitant]
  3. NEOMYCIN [Concomitant]
  4. OMEPRAZOLE [Concomitant]
  5. NYSTATIN [Concomitant]
  6. PARACETAMOL [Concomitant]
  7. PROPOFOL [Concomitant]
  8. COLISTIN [Concomitant]
  9. FENTANYL [Concomitant]
  10. HALOPERIDOL [Concomitant]
  11. INSULIN [Concomitant]
  12. NOREPINEPHRINE BITARTRATE [Concomitant]
  13. OCTREOTIDE [Concomitant]
  14. SIMVASTATIN [Concomitant]
  15. MELATONIN [Concomitant]

REACTIONS (5)
  - NEUTROPHIL COUNT INCREASED [None]
  - EOSINOPHILIA [None]
  - SKIN OEDEMA [None]
  - ACUTE GENERALISED EXANTHEMATOUS PUSTULOSIS [None]
  - ERYTHEMA [None]
